FAERS Safety Report 21530398 (Version 1)
Quarter: 2022Q4

REPORT INFORMATION
  Report Type: Spontaneous
  Country: PK (occurrence: PK)
  Receive Date: 20221031
  Receipt Date: 20221031
  Transmission Date: 20230113
  Serious: Yes (Hospitalization)
  Sender: FDA-Public Use
  Company Number: PK-PFIZER INC-PV202200007904

PATIENT
  Age: 80 Year
  Sex: Female
  Weight: 65.4 kg

DRUGS (6)
  1. IBRANCE [Suspect]
     Active Substance: PALBOCICLIB
     Indication: Breast cancer metastatic
     Dosage: 100 MG, CYCLIC (3 WEEKS, 1 WEEK BREAK)
     Route: 048
     Dates: start: 20220623
  2. DOMPERIDONE [Concomitant]
     Active Substance: DOMPERIDONE
     Dosage: 10 MGAFTER EVERY 12 HOURS ORALLY FOR 1 MONTH AFTER EVERY 12 HOURS FOR 1 MONTH
     Route: 048
  3. IBERET 500 WITH IRON [Concomitant]
     Dosage: 525 MG ((1 TABS TABLET)ONCE DAILY ORALLY FOR 1 MONTH ONCE DAILY FOR 1 MONTH)
     Route: 048
  4. NEXIUM [Concomitant]
     Active Substance: ESOMEPRAZOLE MAGNESIUM
     Dosage: 40 MG, DAILY (1 MONTH)
     Route: 048
  5. REVITALE B [Concomitant]
     Dosage: 1500 MG, DAILY (1 MONTH)
     Route: 048
  6. ENZICLOR [BENZYDAMINE HYDROCHLORIDE;CETYLPYRIDINIUM CHLORIDE] [Concomitant]
     Dosage: 200 ML ((1 APPLICATION)AFTER EVERY 12 HOURS SQUISH AND SPIT FOR 1 MONTH)

REACTIONS (1)
  - Pleural effusion [Unknown]
